FAERS Safety Report 5564498-8 (Version None)
Quarter: 2007Q4

REPORT INFORMATION
  Report Type: 
  Country: None (occurrence: None)
  Receive Date: 20071217
  Receipt Date: 20071213
  Transmission Date: 20080405
  Serious: Yes (Death, Life-Threatening, Hospitalization)
  Sender: FDA-Public Use
  Company Number: US-TEVA-150536USA

PATIENT
  Age: 71 Year
  Sex: Male

DRUGS (12)
  1. FLUOROURACIL 50 MG/ML; 500 MG/10 ML SDV [Suspect]
     Indication: OESOPHAGEAL ADENOCARCINOMA
     Dosage: CYCLE 1, DAY 1-5 OVER 120 HOURS Q 28 DAYS
     Route: 041
     Dates: start: 20061115, end: 20061120
  2. CISPLATIN [Suspect]
     Route: 042
     Dates: start: 20061115, end: 20061115
  3. LISINOPRIL [Concomitant]
     Indication: HYPERTENSION
     Route: 048
  4. METFORMIN HCL [Concomitant]
     Indication: DIABETES MELLITUS
     Route: 048
     Dates: start: 20040101
  5. PROPACET 100 [Concomitant]
     Indication: PAIN
     Dosage: PRN
     Route: 048
     Dates: start: 20061001
  6. LOPERAMIDE HYDROCHLORIDE [Concomitant]
     Indication: DIARRHOEA
     Dosage: PRN
     Route: 048
     Dates: start: 20061119
  7. LOMOTIL [Concomitant]
     Indication: DIARRHOEA
     Route: 048
     Dates: start: 20061122
  8. ONDANSETRON [Concomitant]
     Indication: NAUSEA
     Dosage: PRN
     Route: 048
     Dates: start: 20061122
  9. XYLOXYLIN [Concomitant]
     Indication: STOMATITIS
     Dosage: PRN
     Route: 048
     Dates: start: 20061122
  10. PROCHLORPERAZINE EDISYLATE [Concomitant]
     Indication: NAUSEA
     Dosage: PRN
     Route: 048
     Dates: start: 20061117
  11. SUCRALFATE [Concomitant]
     Indication: STOMATITIS
     Dosage: PRN
     Route: 048
     Dates: start: 20061120
  12. ESOMEPRAZOLE MAGNESIUM [Concomitant]
     Indication: GASTROOESOPHAGEAL REFLUX DISEASE
     Route: 048

REACTIONS (1)
  - INTESTINAL ISCHAEMIA [None]
